FAERS Safety Report 7730990-0 (Version None)
Quarter: 2011Q3

REPORT INFORMATION
  Report Type: 
  Country: None (occurrence: None)
  Receive Date: 20110906
  Receipt Date: 20110901
  Transmission Date: 20111222
  Serious: Yes (Life-Threatening, Hospitalization, Other)
  Sender: FDA-Public Use
  Company Number: RO-BAYER-2011-081132

PATIENT
  Age: 38 Year
  Sex: Male

DRUGS (7)
  1. SPIRONOLACTONE [Concomitant]
     Indication: HEPATIC CIRRHOSIS
     Dosage: 100 MG, BID
     Dates: start: 20070101
  2. PREDNISONE ACETATE [Concomitant]
     Indication: HYPERBILIRUBINAEMIA
     Dosage: 5 MG, TID
     Dates: start: 20110812, end: 20110816
  3. MENADIONE [Concomitant]
     Indication: ELECTROCARDIOGRAM QT PROLONGED
     Dosage: 10 MG, QD
     Dates: start: 20110812, end: 20110812
  4. NEXAVAR [Suspect]
     Indication: HEPATIC NEOPLASM MALIGNANT
     Dosage: 400 MG, BID
     Route: 048
     Dates: start: 20110713, end: 20110802
  5. URSODIOL [Concomitant]
     Indication: HEPATIC CIRRHOSIS
     Dosage: 500 MG, BID
     Dates: start: 20110101
  6. MENADIONE [Concomitant]
  7. SILYBUM MARIANUM [Concomitant]
     Indication: HEPATIC CIRRHOSIS
     Dosage: 150 MG, BID
     Dates: start: 20070101

REACTIONS (1)
  - HEPATIC FAILURE [None]
